FAERS Safety Report 19072563 (Version 1)
Quarter: 2021Q1

REPORT INFORMATION
  Report Type: Spontaneous
  Country: US (occurrence: US)
  Receive Date: 20210330
  Receipt Date: 20210330
  Transmission Date: 20210420
  Serious: Yes (Other)
  Sender: FDA-Public Use
  Company Number: US-CELGENEUS-USA-20210307360

PATIENT
  Sex: Male

DRUGS (2)
  1. THALOMID [Suspect]
     Active Substance: THALIDOMIDE
     Indication: OFF LABEL USE
     Dosage: 200 MILLIGRAM
     Route: 048
     Dates: start: 202101
  2. THALOMID [Suspect]
     Active Substance: THALIDOMIDE
     Indication: PANNICULITIS
     Dosage: 200 MILLIGRAM
     Route: 048
     Dates: start: 20201209

REACTIONS (1)
  - Neuropathy peripheral [Unknown]
